FAERS Safety Report 17396296 (Version 1)
Quarter: 2020Q1

REPORT INFORMATION
  Report Type: Spontaneous
  Country: US (occurrence: US)
  Receive Date: 20200207
  Receipt Date: 20200207
  Transmission Date: 20200409
  Serious: Yes (Life-Threatening)
  Sender: FDA-Public Use
  Company Number: None

PATIENT
  Age: 17 Year
  Sex: Female
  Weight: 83.25 kg

DRUGS (2)
  1. HYDROCODONE-ACETAMINOPHEN 10-325MG [Suspect]
     Active Substance: ACETAMINOPHEN\HYDROCODONE
     Indication: PAIN MANAGEMENT
     Dosage: ?          QUANTITY:20 TABLET(S);OTHER FREQUENCY:EVERY 3 HOURS;?
     Route: 048
     Dates: start: 20200117, end: 20200121
  2. TRIAZOLAM. [Suspect]
     Active Substance: TRIAZOLAM
     Indication: SEDATION
     Dosage: ?          QUANTITY:2 TABLET(S);?
     Route: 048
     Dates: start: 20200117, end: 20200117

REACTIONS (8)
  - Product prescribing issue [None]
  - Loss of consciousness [None]
  - Hypertonia [None]
  - Prescribed overdose [None]
  - Product dispensing error [None]
  - Blood pressure decreased [None]
  - Physical product label issue [None]
  - Respiratory arrest [None]

NARRATIVE: CASE EVENT DATE: 20200117
